FAERS Safety Report 10567997 (Version 1)
Quarter: 2014Q4

REPORT INFORMATION
  Report Type: Spontaneous
  Country: US (occurrence: None)
  Receive Date: 20141104
  Receipt Date: 20141104
  Transmission Date: 20150529
  Serious: Yes (Hospitalization, Other)
  Sender: FDA-Public Use
  Company Number: ADR-2014-02010

PATIENT
  Sex: Male

DRUGS (2)
  1. BACLOFEN INTRATHECAL [Suspect]
     Active Substance: BACLOFEN
     Indication: MUSCLE SPASTICITY
     Route: 048
     Dates: start: 1992, end: 2012
  2. BACLOFEN ORAL [Suspect]
     Active Substance: BACLOFEN
     Dosage: 4 TIMES PER DAY

REACTIONS (10)
  - Implant site vesicles [None]
  - Medical device site reaction [None]
  - Implant site scar [None]
  - Device issue [None]
  - Implant site extravasation [None]
  - Drug level increased [None]
  - Implant site haematoma [None]
  - Implant site inflammation [None]
  - Skin disorder [None]
  - Muscle spasticity [None]
